FAERS Safety Report 22643734 (Version 1)
Quarter: 2023Q2

REPORT INFORMATION
  Report Type: Spontaneous
  Country: US (occurrence: US)
  Receive Date: 20230627
  Receipt Date: 20230627
  Transmission Date: 20230721
  Serious: Yes (Other)
  Sender: FDA-Public Use
  Company Number: US-002147023-NVSC2023US145760

PATIENT
  Age: 16 Year
  Sex: Male

DRUGS (1)
  1. KYMRIAH [Suspect]
     Active Substance: TISAGENLECLEUCEL
     Indication: Acute lymphocytic leukaemia
     Dosage: 1.5 DOSAGE FORM, ONCE/SINGLE (CAR POSITIVE VIABLE T CELLS)
     Route: 042
     Dates: start: 20230606, end: 20230606

REACTIONS (4)
  - Pyrexia [Recovering/Resolving]
  - Swelling [Recovering/Resolving]
  - Periorbital swelling [Recovering/Resolving]
  - Neurotoxicity [Recovering/Resolving]

NARRATIVE: CASE EVENT DATE: 20230606
